FAERS Safety Report 20339639 (Version 1)
Quarter: 2022Q1

REPORT INFORMATION
  Report Type: Spontaneous
  Country: US (occurrence: US)
  Receive Date: 20220117
  Receipt Date: 20220117
  Transmission Date: 20220423
  Serious: Yes (Death, Hospitalization, Other)
  Sender: FDA-Public Use
  Company Number: US-BIOVITRUM-2021US9542

PATIENT
  Age: 0 Year
  Sex: Male

DRUGS (8)
  1. SYNAGIS [Suspect]
     Active Substance: PALIVIZUMAB
     Indication: Premature baby
     Dosage: 100MG/1ML PER 28-30 DAYS
     Route: 030
  2. SYNAGIS [Suspect]
     Active Substance: PALIVIZUMAB
     Indication: Antiviral prophylaxis
     Route: 030
     Dates: start: 20211027
  3. LIORESAL [Concomitant]
     Active Substance: BACLOFEN
     Route: 037
  4. VITAMIN D3 [Concomitant]
     Active Substance: CHOLECALCIFEROL
  5. TRUSOPT [Concomitant]
     Active Substance: DORZOLAMIDE HYDROCHLORIDE
  6. KENALOG [Concomitant]
     Active Substance: TRIAMCINOLONE ACETONIDE
  7. XALATAN [Concomitant]
     Active Substance: LATANOPROST
  8. LANOLIN [Concomitant]
     Active Substance: LANOLIN

REACTIONS (2)
  - Death [Fatal]
  - Rhinovirus infection [Unknown]

NARRATIVE: CASE EVENT DATE: 20211204
